FAERS Safety Report 25148880 (Version 1)
Quarter: 2025Q2

REPORT INFORMATION
  Report Type: Spontaneous
  Country: KR (occurrence: KR)
  Receive Date: 20250402
  Receipt Date: 20250402
  Transmission Date: 20250717
  Serious: Yes (Other)
  Sender: BRISTOL MYERS SQUIBB
  Company Number: KR-BRISTOL-MYERS SQUIBB COMPANY-2025-048278

PATIENT
  Age: 68 Year
  Sex: Female

DRUGS (1)
  1. ELIQUIS [Suspect]
     Active Substance: APIXABAN
     Indication: Product used for unknown indication
     Route: 048
     Dates: end: 20220709

REACTIONS (8)
  - Urticaria [Recovered/Resolved]
  - Melanocytic naevus [Recovered/Resolved]
  - Dermatitis acneiform [Recovered/Resolved]
  - Alopecia [Recovered/Resolved]
  - Skin exfoliation [Recovered/Resolved]
  - Angioedema [Recovered/Resolved]
  - Systemic lupus erythematosus rash [Recovered/Resolved]
  - Rash [Recovered/Resolved]

NARRATIVE: CASE EVENT DATE: 20220709
